FAERS Safety Report 9781130 (Version 1)
Quarter: 2013Q4

REPORT INFORMATION
  Report Type: Report from Study
  Country: US (occurrence: US)
  Receive Date: 20131224
  Receipt Date: 20131224
  Transmission Date: 20140711
  Serious: Yes (Death)
  Sender: FDA-Public Use
  Company Number: US-ASTELLAS-2013US013226

PATIENT
  Age: 83 Year
  Sex: Female

DRUGS (1)
  1. ERLOTINIB TABLET [Suspect]
     Indication: LUNG NEOPLASM MALIGNANT
     Dosage: 50 MG, UNKNOWN/D
     Route: 048
     Dates: start: 201203

REACTIONS (2)
  - Incorrect dose administered [Unknown]
  - Death [Fatal]
